FAERS Safety Report 9245689 (Version 3)
Quarter: 2013Q4

REPORT INFORMATION
  Report Type: Spontaneous
  Country: US (occurrence: US)
  Receive Date: 20130422
  Receipt Date: 20131014
  Transmission Date: 20140711
  Serious: Yes (Other)
  Sender: FDA-Public Use
  Company Number: US-PFIZER INC-2013120974

PATIENT
  Sex: Female

DRUGS (1)
  1. CELEBREX [Suspect]
     Dosage: UNK

REACTIONS (4)
  - Arthropathy [Unknown]
  - Insomnia [Unknown]
  - Pain [Unknown]
  - Pain in extremity [Unknown]
